FAERS Safety Report 4374944-3 (Version None)
Quarter: 2004Q2

REPORT INFORMATION
  Report Type: 
  Country: None (occurrence: None)
  Receive Date: 20040604
  Receipt Date: 20040524
  Transmission Date: 20050107
  Serious: Yes (Hospitalization)
  Sender: FDA-Public Use
  Company Number: 2004GB01000

PATIENT
  Age: 90 Year
  Sex: Female

DRUGS (8)
  1. ATENOLOL [Suspect]
     Indication: ANGINA PECTORIS
     Dosage: 50 MG QD PO
     Route: 048
     Dates: start: 20000101, end: 20040325
  2. DOXAZOSIN [Suspect]
     Indication: HYPERTENSION
     Dosage: 8 MG PO
     Route: 048
     Dates: start: 20030801, end: 20040318
  3. DOXAZOSIN [Suspect]
     Indication: HYPERTENSION
     Dosage: 2 MG PO
     Route: 048
     Dates: start: 20040319, end: 20040330
  4. NICORANDIL [Concomitant]
  5. ISOTARD XL [Concomitant]
  6. CLOPIDOGREL BISULFATE [Concomitant]
  7. LANSOPRAZOLE [Concomitant]
  8. FERROUS GLUCONATE [Concomitant]

REACTIONS (3)
  - CIRCULATORY COLLAPSE [None]
  - ORTHOSTATIC HYPOTENSION [None]
  - SINUS BRADYCARDIA [None]
